FAERS Safety Report 6682479-8 (Version None)
Quarter: 2010Q2

REPORT INFORMATION
  Report Type: 
  Country: None (occurrence: None)
  Receive Date: 20100415
  Receipt Date: 20100409
  Transmission Date: 20101027
  Serious: Yes (Death, Hospitalization)
  Sender: FDA-Public Use
  Company Number: PHHY2010CY22323

PATIENT
  Age: 85 Year
  Sex: Male

DRUGS (4)
  1. ACLASTA [Suspect]
     Indication: PAIN
     Dosage: 5 MG/100 ML
     Route: 042
  2. LASIX [Concomitant]
  3. LANOXIN [Concomitant]
  4. KALIUM [Concomitant]

REACTIONS (7)
  - ATRIAL FIBRILLATION [None]
  - CARDIAC ARREST [None]
  - FALL [None]
  - FEMUR FRACTURE [None]
  - MECHANICAL VENTILATION [None]
  - RESPIRATORY FAILURE [None]
  - SURGERY [None]
